FAERS Safety Report 4831827-X (Version None)
Quarter: 2005Q4

REPORT INFORMATION
  Report Type: 
  Country: None (occurrence: None)
  Receive Date: 20051118
  Receipt Date: 20051111
  Transmission Date: 20060501
  Serious: Yes (Hospitalization)
  Sender: FDA-Public Use
  Company Number: FR-BRISTOL-MYERS SQUIBB COMPANY-13178751

PATIENT
  Age: 55 Year
  Sex: Male

DRUGS (1)
  1. MITOMYCIN [Suspect]
     Indication: BLADDER NEOPLASM
     Route: 043
     Dates: start: 20051001, end: 20051001

REACTIONS (3)
  - DYSURIA [None]
  - PYREXIA [None]
  - RASH [None]
